FAERS Safety Report 18752850 (Version 6)
Quarter: 2021Q4

REPORT INFORMATION
  Report Type: Report from Study
  Country: US (occurrence: US)
  Receive Date: 20210118
  Receipt Date: 20211011
  Transmission Date: 20220304
  Serious: No
  Sender: FDA-Public Use
  Company Number: NVSC2021US007324

PATIENT
  Age: 39 Year
  Sex: Male

DRUGS (2)
  1. COSENTYX [Suspect]
     Active Substance: SECUKINUMAB
     Indication: Psoriasis
     Dosage: 300 MG, OTHER(Q WEEK FOR FIVE WEEKS AND THEN Q FOUR WEEKS)
     Route: 058
     Dates: start: 20201109
  2. COSENTYX [Suspect]
     Active Substance: SECUKINUMAB
     Dosage: 300 MG (Q WEEK FOR FIVE WEEKS AND THEN Q FOUR WEEKS)
     Route: 058
     Dates: start: 20201212

REACTIONS (7)
  - Skin discolouration [Unknown]
  - Injection site pain [Recovered/Resolved]
  - Pruritus [Recovered/Resolved]
  - Psoriasis [Unknown]
  - Pruritus [Unknown]
  - Rash macular [Recovered/Resolved]
  - Pigmentation disorder [Unknown]

NARRATIVE: CASE EVENT DATE: 20201220
